FAERS Safety Report 15589737 (Version 1)
Quarter: 2018Q4

REPORT INFORMATION
  Report Type: Report from Study
  Country: RO (occurrence: RO)
  Receive Date: 20181106
  Receipt Date: 20181106
  Transmission Date: 20190205
  Serious: Yes (Death, Disabling, Other)
  Sender: FDA-Public Use
  Company Number: RO-ASTELLAS-2018US047716

PATIENT
  Age: 80 Year
  Sex: Male

DRUGS (1)
  1. ENZALUTAMIDE [Suspect]
     Active Substance: ENZALUTAMIDE
     Indication: HORMONE-REFRACTORY PROSTATE CANCER
     Dosage: UNK, UNKNOWN FREQ.
     Route: 048

REACTIONS (2)
  - Malignant neoplasm progression [Fatal]
  - Fatigue [Unknown]

NARRATIVE: CASE EVENT DATE: 2018
